FAERS Safety Report 9694799 (Version 4)
Quarter: 2014Q1

REPORT INFORMATION
  Report Type: Report from Study
  Country: JP (occurrence: JP)
  Receive Date: 20131119
  Receipt Date: 20140210
  Transmission Date: 20141002
  Serious: Yes (Death)
  Sender: FDA-Public Use
  Company Number: JP-PFIZER INC-2013325950

PATIENT
  Age: 6 Month
  Sex: Male
  Weight: 4.7 kg

DRUGS (8)
  1. REVATIO [Suspect]
     Indication: PULMONARY ARTERIAL HYPERTENSION
     Dosage: 1 MG, 3X/DAY
     Route: 048
     Dates: start: 20120501, end: 20120501
  2. REVATIO [Suspect]
     Dosage: UNK, 3X/DAY
     Route: 048
     Dates: start: 20120502, end: 20120506
  3. REVATIO [Suspect]
     Dosage: UNK,3X/DAY
     Route: 048
     Dates: start: 20120507, end: 20120530
  4. REVATIO [Suspect]
     Dosage: 2 MG, 3X/DAY
     Route: 048
     Dates: start: 20120531
  5. FUROSEMID [Concomitant]
     Indication: DIURETIC THERAPY
     Dosage: UNK
     Route: 048
     Dates: start: 20120421
  6. ALDACTONE-A [Concomitant]
     Indication: DIURETIC THERAPY
     Dosage: UNK
     Route: 048
     Dates: start: 20120421
  7. ASPIRIN ^BAYER^ [Concomitant]
     Indication: ANTIPLATELET THERAPY
     Dosage: UNK
     Route: 048
     Dates: start: 20120421
  8. WARFARIN [Concomitant]
     Indication: ANTICOAGULANT THERAPY
     Dosage: UNK
     Route: 048
     Dates: start: 20120421

REACTIONS (1)
  - Death [Fatal]
